FAERS Safety Report 4562205-9 (Version None)
Quarter: 2005Q1

REPORT INFORMATION
  Report Type: 
  Country: None (occurrence: None)
  Receive Date: 20050121
  Receipt Date: 20050104
  Transmission Date: 20050727
  Serious: Yes (Other)
  Sender: FDA-Public Use
  Company Number: USA041183750

PATIENT
  Age: 27 Year
  Sex: Male

DRUGS (2)
  1. CIALIS [Suspect]
     Indication: ERECTILE DYSFUNCTION
  2. ADVIL [Concomitant]

REACTIONS (2)
  - GASTRIC ULCER PERFORATION [None]
  - PNEUMOPERITONEUM [None]
